FAERS Safety Report 8468736-3 (Version None)
Quarter: 2012Q2

REPORT INFORMATION
  Report Type: 
  Country: None (occurrence: None)
  Receive Date: 20120626
  Receipt Date: 20120614
  Transmission Date: 20120825
  Serious: Yes (Hospitalization, Other)
  Sender: FDA-Public Use
  Company Number: US-ROCHE-1034489

PATIENT
  Sex: Female

DRUGS (1)
  1. ACCUTANE [Suspect]
     Indication: ACNE
     Route: 048
     Dates: start: 20000802

REACTIONS (5)
  - DEPRESSION [None]
  - ANAL FISTULA [None]
  - CROHN'S DISEASE [None]
  - ANXIETY [None]
  - INFLAMMATORY BOWEL DISEASE [None]
